FAERS Safety Report 7128475-8 (Version None)
Quarter: 2010Q4

REPORT INFORMATION
  Report Type: 
  Country: None (occurrence: None)
  Receive Date: 20101112
  Receipt Date: 20101027
  Transmission Date: 20110411
  Serious: Yes (Death, Hospitalization)
  Sender: FDA-Public Use
  Company Number: 2010004502

PATIENT
  Age: 75 Year
  Sex: Male

DRUGS (7)
  1. ERLOTINIB HYDROCHLORIDE [Suspect]
     Indication: HEPATIC NEOPLASM MALIGNANT
     Dosage: (150 MG, QD), ORAL
     Route: 048
     Dates: start: 20100201, end: 20101004
  2. BEVACIZUMAB [Suspect]
     Indication: HEPATIC NEOPLASM MALIGNANT
     Dosage: (10 MG/KG, 2 X PER 28 DAY) , INTRAVENOUS
     Route: 042
     Dates: start: 20100201, end: 20101004
  3. LOVENOX [Concomitant]
  4. GLIPIZIDE [Concomitant]
  5. ATENOLOL [Concomitant]
  6. MAXZIDE [Concomitant]
  7. ALLOPURINOL [Concomitant]

REACTIONS (2)
  - COMA [None]
  - HAEMORRHAGIC STROKE [None]
